FAERS Safety Report 10537628 (Version 1)
Quarter: 2014Q4

REPORT INFORMATION
  Report Type: Spontaneous
  Country: US (occurrence: None)
  Receive Date: 20141022
  Receipt Date: 20141022
  Transmission Date: 20150529
  Serious: Yes (Life-Threatening, Hospitalization)
  Sender: FDA-Public Use
  Company Number: None

PATIENT
  Age: 59 Year
  Sex: Male
  Weight: 55 kg

DRUGS (15)
  1. ACETAMIOHPEN ALCOHOL FREE(TYELNOL) [Concomitant]
  2. ONDANSETRON(ZOFRAN) [Concomitant]
  3. OXYCODONE [Concomitant]
     Active Substance: OXYCODONE
  4. SODIUM CHLORIDE. [Concomitant]
     Active Substance: SODIUM CHLORIDE
  5. MAGNESIUM HYDROXIDE (MILK OF MAGNESIA) [Concomitant]
  6. TERAZOSIN(HYTRIN) [Concomitant]
  7. FENTANYL (DURAGESIC) [Concomitant]
  8. PHOSPHATE-POTASSIUM + SODIUM (PHOS-NAK) [Concomitant]
  9. CITALOPRAM(CELEXA) [Concomitant]
  10. NAPROXEN(NAPROXYN) [Concomitant]
  11. THIAMINE(VITAMIN B-1) [Concomitant]
  12. METOPROLOL SUCCINATE (TOPROL XL) [Concomitant]
  13. POTASSIUM GLUCONATE [Concomitant]
     Active Substance: POTASSIUM GLUCONATE
  14. CETUXIMAB [Suspect]
     Active Substance: CETUXIMAB
     Indication: OROPHARYNGEAL SQUAMOUS CELL CARCINOMA
     Dosage: 636MG DAY 1,8, 15, 22 INTRAVENOUS
     Route: 042
     Dates: start: 20140617, end: 20140617
  15. POLYETHYLENE GLYCOL (MIRALAX) [Concomitant]

REACTIONS (2)
  - Hypoxia [None]
  - Hypotension [None]

NARRATIVE: CASE EVENT DATE: 20140617
